FAERS Safety Report 8231482-5 (Version None)
Quarter: 2012Q1

REPORT INFORMATION
  Report Type: 
  Country: None (occurrence: None)
  Receive Date: 20120323
  Receipt Date: 20120313
  Transmission Date: 20120608
  Serious: Yes (Other)
  Sender: FDA-Public Use
  Company Number: PHFR2012GB001370

PATIENT
  Sex: Male

DRUGS (8)
  1. CLOZARIL [Suspect]
     Dosage: 350 MG, DAILY
     Route: 048
     Dates: start: 20120103
  2. LAMOTRIGINE [Concomitant]
     Indication: SCHIZOPHRENIA
     Dosage: 300 MG, DAILY
     Route: 048
  3. PROCYCLIDINE HYDROCHLORIDE 2MG TAB [Concomitant]
     Indication: EXTRAPYRAMIDAL DISORDER
     Dosage: 5 MG, DAILY
     Route: 048
  4. LEVOTHYROXINE SODIUM [Concomitant]
     Indication: HYPOTHYROIDISM
     Dosage: 150 MG, DAILY
     Route: 048
  5. FERROUS SULFATE TAB [Concomitant]
     Indication: ANAEMIA
     Dosage: 400 MG, DAILY
     Route: 048
  6. CLOZARIL [Suspect]
     Indication: SCHIZOPHRENIA
     Route: 048
     Dates: start: 20010701
  7. LANSOPRAZOLE [Concomitant]
     Indication: GASTRITIS
     Dosage: 30 MG, DAILY
     Route: 048
  8. METAPRAMINE [Concomitant]
     Indication: GASTRITIS
     Dosage: 20 MG, DAILY
     Route: 048

REACTIONS (5)
  - BODY TEMPERATURE INCREASED [None]
  - NASOPHARYNGITIS [None]
  - WHITE BLOOD CELL COUNT INCREASED [None]
  - LIVER DISORDER [None]
  - OROPHARYNGEAL PAIN [None]
